FAERS Safety Report 9318256 (Version 1)
Quarter: 2013Q2

REPORT INFORMATION
  Report Type: Spontaneous
  Country: US (occurrence: US)
  Receive Date: 20130530
  Receipt Date: 20130530
  Transmission Date: 20140414
  Serious: No
  Sender: FDA-Public Use
  Company Number: US-GLAXOSMITHKLINE-A1009775A

PATIENT
  Age: 69 Year
  Sex: Female

DRUGS (4)
  1. VENTOLIN [Suspect]
     Indication: CHRONIC OBSTRUCTIVE PULMONARY DISEASE
     Dosage: 1SPR TWICE PER DAY
     Route: 055
     Dates: start: 201211
  2. SPIRIVA [Concomitant]
  3. BLOOD PRESSURE MEDICATION [Concomitant]
  4. ANTI-CHOLESTEROL MEDICATION [Concomitant]

REACTIONS (1)
  - Therapeutic response decreased [Unknown]
